FAERS Safety Report 8952485 (Version 2)
Quarter: 2012Q4

REPORT INFORMATION
  Report Type: 
  Country: US (occurrence: US)
  Receive Date: 20121205
  Receipt Date: 20121228
  Transmission Date: 20130627
  Serious: Yes (Hospitalization)
  Sender: FDA-Public Use
  Company Number: US-JNJFOC-20121114365

PATIENT
  Sex: Female
  Weight: 44.91 kg

DRUGS (7)
  1. SANDOZ FENTANYL TRANSDERMAL SYSTEM [Suspect]
     Indication: PELVIC PAIN
     Route: 062
     Dates: start: 201111, end: 201112
  2. SANDOZ FENTANYL TRANSDERMAL SYSTEM [Suspect]
     Indication: PELVIC PAIN
     Route: 062
     Dates: start: 201112
  3. SANDOZ FENTANYL TRANSDERMAL SYSTEM [Suspect]
     Indication: ARTHRALGIA
     Route: 062
     Dates: start: 201111, end: 201112
  4. SANDOZ FENTANYL TRANSDERMAL SYSTEM [Suspect]
     Indication: ARTHRALGIA
     Route: 062
     Dates: start: 201112
  5. NAMENDA [Concomitant]
     Indication: DEMENTIA
     Dosage: 3 weeks of the month
     Route: 048
     Dates: start: 201110
  6. NAMENDA [Concomitant]
     Indication: DEMENTIA
     Dosage: 1 week of month
     Route: 048
     Dates: start: 201110
  7. DIAZEPAM [Concomitant]
     Indication: NERVOUSNESS
     Route: 048

REACTIONS (11)
  - Fall [Recovered/Resolved]
  - Pelvic fracture [Recovered/Resolved]
  - Pelvic pain [Unknown]
  - Product quality issue [Unknown]
  - Product quality issue [Unknown]
  - Feeling abnormal [Unknown]
  - Abdominal pain [Not Recovered/Not Resolved]
  - Anxiety [Unknown]
  - Insomnia [Unknown]
  - Device failure [Unknown]
  - Product packaging quantity issue [Unknown]
